FAERS Safety Report 5000810-6 (Version None)
Quarter: 2006Q2

REPORT INFORMATION
  Report Type: 
  Country: None (occurrence: None)
  Receive Date: 20060512
  Receipt Date: 20060126
  Transmission Date: 20061013
  Serious: Yes (Hospitalization, Disabling)
  Sender: FDA-Public Use
  Company Number: US-MERCK-0601USA03603

PATIENT
  Age: 58 Year
  Sex: Male
  Weight: 70 kg

DRUGS (14)
  1. VIOXX [Suspect]
     Indication: ARTHRITIS
     Route: 048
     Dates: start: 20010101, end: 20010825
  2. VIOXX [Suspect]
     Route: 048
     Dates: start: 20010101, end: 20010825
  3. DIAZEPAM [Concomitant]
     Route: 065
  4. FLURAZEPAM [Concomitant]
     Route: 065
  5. ACETAMINOPHEN AND HYDROCODONE BITARTRATE [Concomitant]
     Route: 065
  6. CLARITIN-D [Concomitant]
     Route: 065
  7. DICLOXACILLIN [Concomitant]
     Route: 065
  8. DIPROLENE [Concomitant]
     Route: 065
  9. NEURONTIN [Concomitant]
     Route: 065
  10. PREDNISONE [Concomitant]
     Route: 065
  11. PREVACID [Concomitant]
     Route: 065
  12. TRIAMCINOLONE [Concomitant]
     Route: 065
  13. VALTREX [Concomitant]
     Route: 065
  14. ZITHROMAX [Concomitant]
     Route: 065

REACTIONS (12)
  - ANAEMIA POSTOPERATIVE [None]
  - BACK PAIN [None]
  - CEREBROVASCULAR ACCIDENT [None]
  - CHEST PAIN [None]
  - CHOLECYSTITIS [None]
  - CHOLELITHIASIS [None]
  - CHRONIC OBSTRUCTIVE PULMONARY DISEASE [None]
  - HYPOKALAEMIA [None]
  - ILEUS [None]
  - LOBAR PNEUMONIA [None]
  - SPINAL CORD DISORDER [None]
  - SPLENIC GRANULOMA [None]
